FAERS Safety Report 22346673 (Version 2)
Quarter: 2023Q2

REPORT INFORMATION
  Report Type: Report from Study
  Country: US (occurrence: US)
  Receive Date: 20230520
  Receipt Date: 20230524
  Transmission Date: 20230721
  Serious: No
  Sender: FDA-Public Use
  Company Number: US-002147023-NVSC2023US113084

PATIENT
  Age: 66 Year
  Sex: Female

DRUGS (1)
  1. KESIMPTA [Suspect]
     Active Substance: OFATUMUMAB
     Indication: Multiple sclerosis
     Dosage: 20 MG, QW (ONCE A WEEK FOR 3 WEEKS FOR LOADING DOSE)
     Route: 058
     Dates: start: 20230513

REACTIONS (3)
  - Insomnia [Recovered/Resolved]
  - Injection site pain [Recovered/Resolved]
  - Myalgia [Recovered/Resolved]

NARRATIVE: CASE EVENT DATE: 20230513
